FAERS Safety Report 7911106-4 (Version None)
Quarter: 2011Q4

REPORT INFORMATION
  Report Type: 
  Country: None (occurrence: None)
  Receive Date: 20111114
  Receipt Date: 20111102
  Transmission Date: 20120403
  Serious: Yes (Hospitalization, Other)
  Sender: FDA-Public Use
  Company Number: JP-RANBAXY-2011R1-50198

PATIENT
  Age: 26 Year
  Sex: Female

DRUGS (3)
  1. DIPHENHYDRAMINE HCL [Suspect]
     Indication: PRODUCT USED FOR UNKNOWN INDICATION
     Dosage: UNK
     Route: 065
  2. AMOXAPINE [Suspect]
     Indication: PRODUCT USED FOR UNKNOWN INDICATION
     Dosage: UNK
     Route: 065
  3. NORTRIPTYLINE HYDROCHLORIDE [Suspect]
     Indication: PRODUCT USED FOR UNKNOWN INDICATION
     Dosage: UNK
     Route: 065

REACTIONS (9)
  - CLONIC CONVULSION [None]
  - SOMNOLENCE [None]
  - VENTRICULAR FIBRILLATION [None]
  - OVERDOSE [None]
  - TACHYPNOEA [None]
  - TOXICITY TO VARIOUS AGENTS [None]
  - SUPRAVENTRICULAR TACHYCARDIA [None]
  - METABOLIC ACIDOSIS [None]
  - FALL [None]
